FAERS Safety Report 6630152-4 (Version None)
Quarter: 2010Q1

REPORT INFORMATION
  Report Type: 
  Country: None (occurrence: None)
  Receive Date: 20100311
  Receipt Date: 20100302
  Transmission Date: 20100710
  Serious: Yes (Other)
  Sender: FDA-Public Use
  Company Number: US-JNJFOC-20100101620

PATIENT
  Age: 59 Year
  Sex: Female
  Weight: 79.38 kg

DRUGS (9)
  1. TYLENOL [Suspect]
     Indication: ARTHRALGIA
     Route: 048
  2. TYLENOL [Suspect]
     Indication: ARTHRITIS
     Route: 048
  3. NEXIUM [Concomitant]
     Indication: GASTROOESOPHAGEAL REFLUX DISEASE
  4. LEVOTHYROXINE [Concomitant]
     Indication: THYROID DISORDER
  5. DIURETIC [Concomitant]
     Indication: DIURETIC THERAPY
  6. ALPRAZOLAM [Concomitant]
     Indication: ANXIETY
  7. CRESTOR [Concomitant]
     Indication: BLOOD CHOLESTEROL INCREASED
  8. SYMBICORT [Concomitant]
     Indication: CHRONIC OBSTRUCTIVE PULMONARY DISEASE
     Dosage: 2 PUFFS DAILY
  9. LOPERAMIDE [Concomitant]
     Indication: IRRITABLE BOWEL SYNDROME

REACTIONS (3)
  - DIZZINESS [None]
  - PRODUCT QUALITY ISSUE [None]
  - RESPIRATORY DISORDER [None]
